FAERS Safety Report 6956729-4 (Version None)
Quarter: 2010Q3

REPORT INFORMATION
  Report Type: 
  Country: None (occurrence: None)
  Receive Date: 20100830
  Receipt Date: 20100817
  Transmission Date: 20110219
  Serious: Yes (Hospitalization)
  Sender: FDA-Public Use
  Company Number: PHHY2010US36350

PATIENT
  Sex: Male
  Weight: 88 kg

DRUGS (6)
  1. EXJADE [Suspect]
     Indication: MYELODYSPLASTIC SYNDROME
     Dosage: 500 MG/DAY
     Route: 048
     Dates: start: 20090707, end: 20100220
  2. EXJADE [Suspect]
     Indication: BLOOD IRON INCREASED
  3. ANTIHYPERTENSIVE DRUGS [Concomitant]
     Indication: HYPERTENSION
  4. CHEMOTHERAPEUTICS NOS [Concomitant]
     Indication: MYELODYSPLASTIC SYNDROME
  5. DECITABINE [Concomitant]
     Indication: MYELODYSPLASTIC SYNDROME
  6. LISINOPRIL [Concomitant]
     Indication: HYPERTENSION
     Dosage: 40 MG/DAY
     Route: 048
     Dates: start: 20100401

REACTIONS (26)
  - ACTIVATED PARTIAL THROMBOPLASTIN TIME PROLONGED [None]
  - ALANINE AMINOTRANSFERASE INCREASED [None]
  - ALTERED STATE OF CONSCIOUSNESS [None]
  - ANAEMIA [None]
  - APHASIA [None]
  - ASPARTATE AMINOTRANSFERASE INCREASED [None]
  - BASOPHIL COUNT INCREASED [None]
  - BLOOD BILIRUBIN INCREASED [None]
  - BLOOD GLUCOSE INCREASED [None]
  - BLOOD POTASSIUM DECREASED [None]
  - BRAIN NATRIURETIC PEPTIDE INCREASED [None]
  - CEREBROVASCULAR ACCIDENT [None]
  - CONFUSIONAL STATE [None]
  - DISORIENTATION [None]
  - FEBRILE NEUTROPENIA [None]
  - HAEMATOCRIT DECREASED [None]
  - HEADACHE [None]
  - ISCHAEMIC CEREBRAL INFARCTION [None]
  - LYMPHOCYTE COUNT INCREASED [None]
  - MONOCYTE COUNT INCREASED [None]
  - PANCYTOPENIA [None]
  - RED BLOOD CELL COUNT DECREASED [None]
  - STAPHYLOCOCCAL INFECTION [None]
  - TOTAL CHOLESTEROL/HDL RATIO INCREASED [None]
  - URINARY TRACT INFECTION [None]
  - VASCULAR DEMENTIA [None]
